FAERS Safety Report 9905462 (Version 1)
Quarter: 2014Q1

REPORT INFORMATION
  Report Type: Spontaneous
  Country: US (occurrence: US)
  Receive Date: 20140218
  Receipt Date: 20140218
  Transmission Date: 20141002
  Serious: Yes (Hospitalization)
  Sender: FDA-Public Use
  Company Number: US-ASTRAZENECA-2014SE09627

PATIENT
  Age: 75 Year
  Sex: Female
  Weight: 72.6 kg

DRUGS (7)
  1. SYMBICORT [Suspect]
     Indication: CHRONIC OBSTRUCTIVE PULMONARY DISEASE
     Dosage: 320MCG BID
     Route: 055
     Dates: start: 201311
  2. ALBUTEROL [Concomitant]
     Indication: CHRONIC OBSTRUCTIVE PULMONARY DISEASE
     Dosage: 4PUFFS Q4H
  3. ATROVENT [Concomitant]
     Indication: CHRONIC OBSTRUCTIVE PULMONARY DISEASE
     Dosage: 4 PUFFS Q4H
  4. DUONEB [Concomitant]
     Indication: CHRONIC OBSTRUCTIVE PULMONARY DISEASE
     Dosage: 1 UNIT PRN
  5. MOM [Concomitant]
     Indication: BOWEL MOVEMENT IRREGULARITY
     Route: 048
  6. DILAUDID [Concomitant]
     Indication: PAIN
  7. ATIVAN [Concomitant]
     Indication: ANXIETY

REACTIONS (5)
  - Abdominal discomfort [Recovered/Resolved]
  - Aphagia [Recovered/Resolved]
  - Fluid intake reduced [Unknown]
  - Hypotension [Recovered/Resolved]
  - Off label use [Not Recovered/Not Resolved]
